FAERS Safety Report 7128148-1 (Version None)
Quarter: 2010Q4

REPORT INFORMATION
  Report Type: 
  Country: None (occurrence: None)
  Receive Date: 20101130
  Receipt Date: 20101126
  Transmission Date: 20110411
  Serious: Yes (Hospitalization)
  Sender: FDA-Public Use
  Company Number: JP-PFIZER INC-2010159700

PATIENT
  Age: 71 Year
  Sex: Female
  Weight: 52.9 kg

DRUGS (2)
  1. SUNITINIB MALATE [Suspect]
     Indication: GASTROINTESTINAL STROMAL TUMOUR
     Dosage: 25 MG, 1X/DAY
     Route: 048
     Dates: start: 20081210, end: 20100817
  2. ALLELOCK [Concomitant]
     Dosage: UNK
     Route: 048
     Dates: start: 20081220

REACTIONS (1)
  - MALAISE [None]
